FAERS Safety Report 10747864 (Version 1)
Quarter: 2015Q1

REPORT INFORMATION
  Report Type: Spontaneous
  Country: US (occurrence: US)
  Receive Date: 20150129
  Receipt Date: 20150129
  Transmission Date: 20150721
  Serious: Yes (Other)
  Sender: FDA-Public Use
  Company Number: US-PAR PHARMACEUTICAL, INC-2015SCPR010325

PATIENT

DRUGS (3)
  1. LAMOTRIGINE. [Suspect]
     Active Substance: LAMOTRIGINE
     Indication: FACIAL NEURALGIA
     Dosage: 3 DF, / DAY, 2 TABLETS EVERY MORNING AND 1 TABLET EVERY EVENING
     Route: 048
     Dates: start: 20141214
  2. ATORVASTATIN [Concomitant]
     Active Substance: ATORVASTATIN
     Indication: BLOOD CHOLESTEROL ABNORMAL
     Dosage: UNK UNK, OD
     Route: 048
  3. LOSARTAN [Concomitant]
     Active Substance: LOSARTAN
     Indication: HYPERTENSION
     Dosage: UNK, OD
     Route: 048

REACTIONS (9)
  - Abasia [Unknown]
  - Coordination abnormal [Not Recovered/Not Resolved]
  - Headache [Not Recovered/Not Resolved]
  - Product use issue [Unknown]
  - Vision blurred [Recovered/Resolved]
  - Vomiting [Recovered/Resolved]
  - Dry mouth [Unknown]
  - Balance disorder [Not Recovered/Not Resolved]
  - Diplopia [Unknown]

NARRATIVE: CASE EVENT DATE: 20141214
